FAERS Safety Report 6247603-X (Version None)
Quarter: 2009Q2

REPORT INFORMATION
  Report Type: 
  Country: None (occurrence: None)
  Receive Date: 20090626
  Receipt Date: 20090622
  Transmission Date: 20091009
  Serious: Yes (Life-Threatening, Hospitalization)
  Sender: FDA-Public Use
  Company Number: ES-WYE-H09848909

PATIENT
  Sex: Female

DRUGS (13)
  1. SIROLIMUS [Suspect]
     Indication: PROPHYLAXIS AGAINST TRANSPLANT REJECTION
     Route: 048
     Dates: start: 20031105, end: 20031203
  2. DACLIZUMAB [Concomitant]
     Indication: PROPHYLAXIS AGAINST TRANSPLANT REJECTION
     Dosage: 160 MG
     Route: 042
     Dates: start: 20031106
  3. METHYLPREDNISOLONE [Concomitant]
     Indication: PROPHYLAXIS AGAINST TRANSPLANT REJECTION
     Route: 042
     Dates: start: 20031105, end: 20031105
  4. METHYLPREDNISOLONE [Concomitant]
     Route: 048
     Dates: start: 20031106
  5. LEVOFLOXACIN [Concomitant]
     Dosage: UNSPECIFIED
     Dates: start: 20031201
  6. PREDNISONE TAB [Concomitant]
     Indication: PROPHYLAXIS AGAINST TRANSPLANT REJECTION
     Route: 048
     Dates: start: 20031108
  7. PREDNISONE TAB [Concomitant]
     Route: 048
     Dates: start: 20031128, end: 20031130
  8. AUGMENTIN [Concomitant]
     Dosage: UNSPECIFIED
     Dates: start: 20031105, end: 20031108
  9. RANUBER [Concomitant]
     Dosage: UNSPECIFIED
     Dates: start: 20031106
  10. IMIPENEM [Concomitant]
     Dosage: UNSPECIFIED
     Dates: start: 20031201
  11. MYCOPHENOLATE MOFETIL [Concomitant]
     Indication: PROPHYLAXIS AGAINST TRANSPLANT REJECTION
     Route: 048
     Dates: start: 20031105, end: 20030101
  12. MYCOPHENOLATE MOFETIL [Concomitant]
     Route: 042
     Dates: start: 20031202
  13. CYCLOSPORINE [Concomitant]
     Indication: PROPHYLAXIS AGAINST TRANSPLANT REJECTION
     Dosage: UNSPECIFIED
     Dates: start: 20031205

REACTIONS (6)
  - CARDIAC FAILURE [None]
  - COMPLICATIONS OF TRANSPLANTED KIDNEY [None]
  - HAEMOPTYSIS [None]
  - INTERSTITIAL LUNG DISEASE [None]
  - MITRAL VALVE INCOMPETENCE [None]
  - RESPIRATORY FAILURE [None]
